FAERS Safety Report 16786425 (Version 1)
Quarter: 2019Q3

REPORT INFORMATION
  Report Type: Spontaneous
  Country: IT (occurrence: IT)
  Receive Date: 20190909
  Receipt Date: 20190909
  Transmission Date: 20191005
  Serious: Yes (Hospitalization)
  Sender: FDA-Public Use
  Company Number: IT-PFIZER INC-2019381712

PATIENT
  Age: 79 Year
  Sex: Male

DRUGS (11)
  1. TOLEP [Concomitant]
     Active Substance: OXCARBAZEPINE
  2. RYTMONORM [Concomitant]
     Active Substance: PROPAFENONE
  3. LAMICTAL [Concomitant]
     Active Substance: LAMOTRIGINE
  4. COAPROVEL [Suspect]
     Active Substance: HYDROCHLOROTHIAZIDE\IRBESARTAN
     Indication: HYPERTENSION
     Dosage: 300 MG/25 MG , 1X/DAY
     Route: 048
  5. APLACTIN [Concomitant]
     Active Substance: PRAVASTATIN SODIUM
  6. LIBRADIN [BARNIDIPINE HYDROCHLORIDE] [Concomitant]
  7. ESKIM [Concomitant]
     Active Substance: OMEGA-3 FATTY ACIDS
  8. DIBASE [Concomitant]
     Active Substance: CHOLECALCIFEROL
  9. LIXIANA [Concomitant]
     Active Substance: EDOXABAN TOSYLATE
  10. ESOMEPRAZOLE SODIUM. [Concomitant]
     Active Substance: ESOMEPRAZOLE SODIUM
  11. CARDURA [Suspect]
     Active Substance: DOXAZOSIN MESYLATE
     Indication: HYPERTENSION
     Dosage: 2 DF, 1X/DAY
     Route: 048

REACTIONS (3)
  - Hypercreatininaemia [Recovering/Resolving]
  - Drug ineffective [Recovering/Resolving]
  - Hypertension [Recovering/Resolving]

NARRATIVE: CASE EVENT DATE: 20190614
